FAERS Safety Report 12799968 (Version 1)
Quarter: 2016Q3

REPORT INFORMATION
  Report Type: Spontaneous
  Country: SI (occurrence: SI)
  Receive Date: 20160930
  Receipt Date: 20160930
  Transmission Date: 20161109
  Serious: Yes (Death, Hospitalization, Other)
  Sender: FDA-Public Use
  Company Number: SI-BAYER-2016-183610

PATIENT
  Age: 55 Year
  Sex: Male

DRUGS (2)
  1. NEXAVAR [Suspect]
     Active Substance: SORAFENIB
     Indication: HEPATOCELLULAR CARCINOMA
     Dosage: UNK
     Dates: start: 200810
  2. TRANEXAMIC ACID. [Concomitant]
     Active Substance: TRANEXAMIC ACID

REACTIONS (12)
  - Peritonitis bacterial [None]
  - Diarrhoea [None]
  - Hepatic cirrhosis [None]
  - Asthenia [None]
  - Malaise [None]
  - Sepsis [None]
  - Ascites [None]
  - Death [Fatal]
  - Oedema [None]
  - Hepatic encephalopathy [None]
  - Gastrointestinal haemorrhage [None]
  - Weight decreased [None]

NARRATIVE: CASE EVENT DATE: 20081231
